FAERS Safety Report 9311850 (Version 3)
Quarter: 2013Q2

REPORT INFORMATION
  Report Type: Report from Study
  Country: BR (occurrence: BR)
  Receive Date: 20130528
  Receipt Date: 20130612
  Transmission Date: 20140414
  Serious: Yes (Hospitalization, Other)
  Sender: FDA-Public Use
  Company Number: PHHY2013BR048334

PATIENT
  Sex: Female

DRUGS (4)
  1. DIOVAN AMLO FIX [Suspect]
     Indication: HYPERTENSION
     Dosage: 1 DF, (320/5 MG) DAILY
     Route: 048
  2. PLAKETAR [Suspect]
     Indication: BLOOD DISORDER
     Dosage: 1 DF, (250 MG) DAILY
     Route: 048
  3. CLINFAR [Concomitant]
     Indication: BLOOD CHOLESTEROL
     Dosage: 1 DF, (20 MG) DAILY
     Route: 048
  4. NEBILET [Concomitant]
     Indication: HYPERTENSION
     Dosage: 1 DF, (5 MG) DAILY
     Route: 048

REACTIONS (2)
  - Hypertension [Recovering/Resolving]
  - Vascular bypass dysfunction [Unknown]
